FAERS Safety Report 16773286 (Version 2)
Quarter: 2019Q4

REPORT INFORMATION
  Report Type: Report from Study
  Country: US (occurrence: US)
  Receive Date: 20190904
  Receipt Date: 20191126
  Transmission Date: 20200122
  Serious: Yes (Other)
  Sender: FDA-Public Use
  Company Number: US-ACTELION-A-US2017-159328

PATIENT
  Age: 60 Year
  Sex: Female

DRUGS (13)
  1. OPSUMIT [Suspect]
     Active Substance: MACITENTAN
     Indication: PULMONARY ARTERIAL HYPERTENSION
     Dosage: 10 MG, QD
     Route: 048
     Dates: start: 201707
  2. ADCIRCA [Suspect]
     Active Substance: TADALAFIL
     Indication: PRODUCT USED FOR UNKNOWN INDICATION
     Dosage: 40 MG, QD
     Route: 065
     Dates: start: 201610
  3. NEXIUM [Concomitant]
     Active Substance: ESOMEPRAZOLE MAGNESIUM
     Dosage: 40 MG, QD
     Dates: start: 1983
  4. VICODIN [Concomitant]
     Active Substance: ACETAMINOPHEN\HYDROCODONE BITARTRATE
     Dosage: UNK MG,4 TABS
     Dates: start: 2011
  5. SERTRALINE [Concomitant]
     Active Substance: SERTRALINE HYDROCHLORIDE
     Dosage: 50 MG, QD
  6. CLONIDINE. [Concomitant]
     Active Substance: CLONIDINE
  7. ACYCLOVIR. [Concomitant]
     Active Substance: ACYCLOVIR
  8. PREMARIN [Concomitant]
     Active Substance: ESTROGENS, CONJUGATED
  9. GABAPENTIN. [Suspect]
     Active Substance: GABAPENTIN
     Indication: PAIN
     Route: 065
  10. FUROSEMIDE. [Concomitant]
     Active Substance: FUROSEMIDE
     Dosage: UNK MG, EVERY OTHER DAY
  11. METHYLPREDNISOLONE. [Concomitant]
     Active Substance: METHYLPREDNISOLONE
  12. PREDNISONE. [Concomitant]
     Active Substance: PREDNISONE
  13. HYDROCODONE [Concomitant]
     Active Substance: HYDROCODONE

REACTIONS (12)
  - Pain in extremity [Unknown]
  - Haemoglobin decreased [Unknown]
  - Pain [Unknown]
  - Joint swelling [Unknown]
  - Constipation [Unknown]
  - Deafness [Unknown]
  - Faeces discoloured [Recovering/Resolving]
  - Heart rate increased [Recovering/Resolving]
  - Somnolence [Unknown]
  - Anaemia [Recovering/Resolving]
  - Nausea [Not Recovered/Not Resolved]
  - Weight increased [Not Recovered/Not Resolved]

NARRATIVE: CASE EVENT DATE: 201708
